FAERS Safety Report 16715501 (Version 1)
Quarter: 2019Q3

REPORT INFORMATION
  Report Type: Spontaneous
  Country: US (occurrence: US)
  Receive Date: 20190819
  Receipt Date: 20190819
  Transmission Date: 20191005
  Serious: No
  Sender: FDA-Public Use
  Company Number: US-HORIZON-DUE-0479-2019

PATIENT
  Age: 61 Year
  Sex: Female

DRUGS (5)
  1. PENNSAID [Concomitant]
     Active Substance: DICLOFENAC SODIUM
  2. GABAPENTIN. [Concomitant]
     Active Substance: GABAPENTIN
  3. UNITHYROID [Concomitant]
  4. DUEXIS [Suspect]
     Active Substance: FAMOTIDINE\IBUPROFEN
     Indication: INJURY
     Dosage: ONCE DAILY
     Dates: start: 201906
  5. CELEBREX [Concomitant]
     Active Substance: CELECOXIB

REACTIONS (3)
  - Off label use [Unknown]
  - Intentional product use issue [Unknown]
  - Abdominal discomfort [Recovered/Resolved]

NARRATIVE: CASE EVENT DATE: 201906
